FAERS Safety Report 23674860 (Version 1)
Quarter: 2024Q1

REPORT INFORMATION
  Report Type: Report from Study
  Country: US (occurrence: US)
  Receive Date: 20240326
  Receipt Date: 20240326
  Transmission Date: 20240410
  Serious: Yes (Other)
  Sender: FDA-Public Use
  Company Number: US-002147023-NVSC2021US247108

PATIENT
  Age: 54 Year
  Sex: Female
  Weight: 79.37 kg

DRUGS (7)
  1. TREPROSTINIL [Suspect]
     Active Substance: TREPROSTINIL
     Dosage: 77 NG/KG/MIN, CONTINUOUS
     Route: 065
  2. TREPROSTINIL [Suspect]
     Active Substance: TREPROSTINIL
     Indication: Pulmonary arterial hypertension
     Dosage: 77 NG/KG/MIN CONT
     Route: 058
     Dates: start: 20210817
  3. TREPROSTINIL [Suspect]
     Active Substance: TREPROSTINIL
     Dosage: 77 NG/KG/MIN CONT
     Route: 058
  4. TREPROSTINIL [Suspect]
     Active Substance: TREPROSTINIL
     Dosage: 77 NG/KG/MIN CONT
     Route: 058
  5. TREPROSTINIL [Suspect]
     Active Substance: TREPROSTINIL
     Indication: Product used for unknown indication
     Dosage: UNK
     Route: 065
  6. SILDENAFIL CITRATE [Concomitant]
     Active Substance: SILDENAFIL CITRATE
     Indication: Product used for unknown indication
     Dosage: UNK
     Route: 065
  7. WARFARIN SODIUM [Concomitant]
     Active Substance: WARFARIN SODIUM
     Indication: Product used for unknown indication
     Dosage: UNK
     Route: 065

REACTIONS (9)
  - Infection [Unknown]
  - Injection site erythema [Recovering/Resolving]
  - Injection site pain [Recovering/Resolving]
  - Injection site swelling [Recovering/Resolving]
  - Infusion site infection [Unknown]
  - Injection site pruritus [Unknown]
  - Injection site discolouration [Unknown]
  - Injection site mass [Unknown]
  - Infusion site infection [Unknown]

NARRATIVE: CASE EVENT DATE: 20220820
